FAERS Safety Report 25941795 (Version 1)
Quarter: 2025Q4

REPORT INFORMATION
  Report Type: Spontaneous
  Country: US (occurrence: US)
  Receive Date: 20251020
  Receipt Date: 20251020
  Transmission Date: 20260118
  Serious: Yes (Death, Hospitalization)
  Sender: GRIFOLS
  Company Number: US-IGSA-BIG0038858

PATIENT
  Age: 81 Year
  Sex: Female

DRUGS (1)
  1. PROLASTIN-C LIQUID [Suspect]
     Active Substance: .ALPHA.1-PROTEINASE INHIBITOR HUMAN
     Indication: Product used for unknown indication
     Dosage: 1096 MILLIGRAM
     Route: 065

REACTIONS (2)
  - Respiratory tract infection [Fatal]
  - Pneumonia [Fatal]
